FAERS Safety Report 8185722 (Version 2)
Quarter: 2016Q2

REPORT INFORMATION
  Report Type: Spontaneous
  Country: US (occurrence: US)
  Receive Date: 20111018
  Receipt Date: 20160502
  Transmission Date: 20160815
  Serious: No
  Sender: FDA-Public Use
  Company Number: US-ASTRAZENECA-2010SE42247

PATIENT
  Age: 24873 Day
  Sex: Female

DRUGS (16)
  1. ESTRADIOL. [Concomitant]
     Active Substance: ESTRADIOL
  2. TOFRANIL [Concomitant]
     Active Substance: IMIPRAMINE HYDROCHLORIDE
  3. PULMICORT FLEXHALER [Suspect]
     Active Substance: BUDESONIDE
     Route: 055
  4. LORTAB [Concomitant]
     Active Substance: ACETAMINOPHEN\HYDROCODONE BITARTRATE
  5. CELEBREX [Concomitant]
     Active Substance: CELECOXIB
  6. SEROQUEL XR [Suspect]
     Active Substance: QUETIAPINE FUMARATE
     Indication: BIPOLAR DISORDER
     Route: 048
     Dates: start: 2010
  7. FUROSEMIDE. [Concomitant]
     Active Substance: FUROSEMIDE
  8. PREVACID [Concomitant]
     Active Substance: LANSOPRAZOLE
  9. PLAQUENIL [Concomitant]
     Active Substance: HYDROXYCHLOROQUINE SULFATE
     Indication: SJOGREN^S SYNDROME
  10. MIRAPEX [Concomitant]
     Active Substance: PRAMIPEXOLE DIHYDROCHLORIDE
  11. SYMBICORT [Suspect]
     Active Substance: BUDESONIDE\FORMOTEROL FUMARATE DIHYDRATE
     Dosage: 160/4.5 MCG UNKNOWN
     Route: 055
  12. PRISTIQ EXTENDED-RELEASE [Concomitant]
     Active Substance: DESVENLAFAXINE SUCCINATE
  13. LYRICA [Concomitant]
     Active Substance: PREGABALIN
  14. SEROQUEL XR [Suspect]
     Active Substance: QUETIAPINE FUMARATE
     Indication: BIPOLAR DISORDER
     Route: 048
     Dates: end: 2010
  15. RESTASIS [Concomitant]
     Active Substance: CYCLOSPORINE
     Indication: DRY EYE
  16. SOMA [Concomitant]
     Active Substance: CARISOPRODOL

REACTIONS (16)
  - Personality change [Unknown]
  - Sinus disorder [Unknown]
  - Hypersensitivity [Unknown]
  - Insomnia [Unknown]
  - Anger [Unknown]
  - Drug dose omission [Unknown]
  - Rhinorrhoea [Unknown]
  - Wheezing [Unknown]
  - Depression [Unknown]
  - Cough [Unknown]
  - Productive cough [Unknown]
  - Accident [Unknown]
  - Injury [Unknown]
  - Dyspnoea [Unknown]
  - Panic attack [Unknown]
  - Pain [Unknown]

NARRATIVE: CASE EVENT DATE: 20110201
